FAERS Safety Report 9628258 (Version 1)
Quarter: 2013Q4

REPORT INFORMATION
  Report Type: Spontaneous
  Country: US (occurrence: US)
  Receive Date: 20131017
  Receipt Date: 20131017
  Transmission Date: 20140711
  Serious: No
  Sender: FDA-Public Use
  Company Number: US-009507513-1309USA014158

PATIENT
  Sex: Female

DRUGS (3)
  1. VICTRELIS [Suspect]
     Indication: HEPATITIS C
     Dosage: UNK
     Route: 048
     Dates: start: 20130418
  2. REBETOL [Suspect]
     Indication: HEPATITIS C
     Dosage: UNK
     Route: 048
     Dates: start: 20130320
  3. PEGASYS [Suspect]
     Indication: HEPATITIS C
     Dosage: UNK
     Dates: start: 20130320

REACTIONS (12)
  - Full blood count decreased [Unknown]
  - Adverse drug reaction [Recovered/Resolved]
  - Oedema [Recovering/Resolving]
  - Groin pain [Not Recovered/Not Resolved]
  - Pain [Recovering/Resolving]
  - Abdominal pain lower [Not Recovered/Not Resolved]
  - Abdominal distension [Recovering/Resolving]
  - Abdominal discomfort [Not Recovered/Not Resolved]
  - Dysuria [Not Recovered/Not Resolved]
  - Weight decreased [Unknown]
  - Headache [Unknown]
  - Fatigue [Recovered/Resolved]
